FAERS Safety Report 9356892 (Version 3)
Quarter: 2013Q3

REPORT INFORMATION
  Report Type: Report from Study
  Country: TH (occurrence: TH)
  Receive Date: 20130620
  Receipt Date: 20130702
  Transmission Date: 20140515
  Serious: Yes (Other)
  Sender: FDA-Public Use
  Company Number: TH-ROCHE-1237954

PATIENT
  Age: 57 Year
  Sex: Male

DRUGS (3)
  1. MABTHERA [Suspect]
     Indication: ACUTE LYMPHOCYTIC LEUKAEMIA
     Route: 041
     Dates: start: 201303
  2. DEXAMETHASONE [Suspect]
     Indication: NON-HODGKIN^S LYMPHOMA
     Route: 042
  3. DEXAMETHASONE [Suspect]
     Route: 065

REACTIONS (1)
  - Osteonecrosis [Not Recovered/Not Resolved]
